FAERS Safety Report 15053189 (Version 2)
Quarter: 2018Q2

REPORT INFORMATION
  Report Type: Report from Study
  Country: US (occurrence: US)
  Receive Date: 20180622
  Receipt Date: 20180627
  Transmission Date: 20180711
  Serious: Yes (Hospitalization)
  Sender: FDA-Public Use
  Company Number: US-ACTELION-A-NJ2018-173570

PATIENT
  Age: 56 Year
  Sex: Female
  Weight: 62.13 kg

DRUGS (5)
  1. UPTRAVI [Suspect]
     Active Substance: SELEXIPAG
     Indication: PULMONARY ARTERIAL HYPERTENSION
     Dosage: 800 MCG, BID
     Route: 048
     Dates: end: 20180605
  2. VELETRI [Suspect]
     Active Substance: EPOPROSTENOL
     Dosage: 8 NG/KG, PER MIN
     Route: 042
     Dates: start: 20180605
  3. OPSUMIT [Concomitant]
     Active Substance: MACITENTAN
  4. FLOLAN [Suspect]
     Active Substance: EPOPROSTENOL SODIUM
     Indication: PRODUCT USED FOR UNKNOWN INDICATION
     Route: 065
  5. VELETRI [Suspect]
     Active Substance: EPOPROSTENOL
     Indication: PULMONARY ARTERIAL HYPERTENSION
     Dosage: 9 NG/KG, PER MIN
     Route: 042

REACTIONS (7)
  - Hypotension [Unknown]
  - Diarrhoea [Unknown]
  - Hyperhidrosis [Unknown]
  - Vomiting [Unknown]
  - Headache [Unknown]
  - Hospitalisation [Unknown]
  - Presyncope [Unknown]
